FAERS Safety Report 12736374 (Version 2)
Quarter: 2016Q4

REPORT INFORMATION
  Report Type: Spontaneous
  Country: US (occurrence: US)
  Receive Date: 20160912
  Receipt Date: 20161028
  Transmission Date: 20170207
  Serious: Yes (Hospitalization, Other)
  Sender: FDA-Public Use
  Company Number: US-GLAXOSMITHKLINE-US2016131456

PATIENT
  Age: 57 Year
  Sex: Male

DRUGS (5)
  1. RYTHMOL SR [Suspect]
     Active Substance: PROPAFENONE HYDROCHLORIDE
     Indication: ATRIAL FIBRILLATION
     Dosage: 225 MG, BID
     Route: 048
     Dates: start: 2002
  2. METOPROLOL. [Concomitant]
     Active Substance: METOPROLOL
  3. TEGRETOL [Concomitant]
     Active Substance: CARBAMAZEPINE
  4. ASPIRIN. [Concomitant]
     Active Substance: ASPIRIN
  5. RYTHMOL SR [Suspect]
     Active Substance: PROPAFENONE HYDROCHLORIDE
     Indication: HEART RATE IRREGULAR

REACTIONS (1)
  - Pulmonary thrombosis [Not Recovered/Not Resolved]

NARRATIVE: CASE EVENT DATE: 20160905
